FAERS Safety Report 5031672-9 (Version None)
Quarter: 2006Q2

REPORT INFORMATION
  Report Type: 
  Country: None (occurrence: None)
  Receive Date: 20060616
  Receipt Date: 20060603
  Transmission Date: 20061013
  Serious: Yes (Other)
  Sender: FDA-Public Use
  Company Number: USA-2006-0024188

PATIENT
  Age: 52 Year
  Sex: Male

DRUGS (2)
  1. OXYCODONE HCL [Suspect]
     Indication: PAIN
     Dosage: SEE IMAGE
     Route: 048
     Dates: start: 20010101
  2. UNKNOWN [Concomitant]

REACTIONS (5)
  - BONE MARROW DISORDER [None]
  - CONSTIPATION [None]
  - DIFFICULTY IN WALKING [None]
  - MICTURITION DISORDER [None]
  - SEXUAL DYSFUNCTION [None]
